FAERS Safety Report 4967750-X (Version None)
Quarter: 2006Q2

REPORT INFORMATION
  Report Type: 
  Country: None (occurrence: None)
  Receive Date: 20060410
  Receipt Date: 20050324
  Transmission Date: 20061013
  Serious: Yes (Hospitalization, Disabling, Other)
  Sender: FDA-Public Use
  Company Number: US-MERCK-0503USA04693

PATIENT
  Age: 53 Year
  Sex: Female
  Weight: 66 kg

DRUGS (1)
  1. VIOXX [Suspect]
     Indication: ARTHRITIS
     Route: 048

REACTIONS (8)
  - BLADDER DISORDER [None]
  - CHRONIC OBSTRUCTIVE PULMONARY DISEASE [None]
  - EAR DISORDER [None]
  - HEMIPLEGIA [None]
  - ISCHAEMIC STROKE [None]
  - LUNG NEOPLASM MALIGNANT [None]
  - OVERDOSE [None]
  - POLYTRAUMATISM [None]
